FAERS Safety Report 20163332 (Version 1)
Quarter: 2021Q4

REPORT INFORMATION
  Report Type: Spontaneous
  Country: CN (occurrence: CN)
  Receive Date: 20211209
  Receipt Date: 20211209
  Transmission Date: 20220303
  Serious: No
  Sender: FDA-Public Use
  Company Number: CN-LUPIN PHARMACEUTICALS INC.-2021-23698

PATIENT
  Age: 47 Year
  Sex: Female

DRUGS (2)
  1. MINOCYCLINE [Suspect]
     Active Substance: MINOCYCLINE HYDROCHLORIDE
     Indication: SAPHO syndrome
     Dosage: 100 MILLIGRAM, QD
     Route: 065
     Dates: start: 201305
  2. TRIPTERYGIUM SPP. [Concomitant]
     Indication: Palmoplantar pustulosis
     Dosage: UNK
     Route: 048

REACTIONS (1)
  - Skin hyperpigmentation [Unknown]
